FAERS Safety Report 12881508 (Version 3)
Quarter: 2017Q3

REPORT INFORMATION
  Report Type: Spontaneous
  Country: US (occurrence: US)
  Receive Date: 20161025
  Receipt Date: 20170823
  Transmission Date: 20171127
  Serious: Yes (Other)
  Sender: FDA-Public Use
  Company Number: US-JNJFOC-20161009713

PATIENT
  Sex: Male

DRUGS (1)
  1. RISPERDAL [Suspect]
     Active Substance: RISPERIDONE
     Indication: BIPOLAR DISORDER
     Route: 048
     Dates: start: 20071012, end: 20090413

REACTIONS (5)
  - Emotional distress [Unknown]
  - Nervousness [Unknown]
  - Obesity [Unknown]
  - Nightmare [Unknown]
  - Gynaecomastia [Unknown]
